FAERS Safety Report 6265658-3 (Version None)
Quarter: 2009Q3

REPORT INFORMATION
  Report Type: 
  Country: None (occurrence: None)
  Receive Date: 20090709
  Receipt Date: 20090709
  Transmission Date: 20100115
  Serious: No
  Sender: FDA-Public Use
  Company Number: None

PATIENT
  Sex: Female

DRUGS (1)
  1. LIPITOR [Suspect]
     Indication: BLOOD CHOLESTEROL INCREASED
     Dosage: DAILY 1 PO
     Route: 048
     Dates: start: 19970101, end: 20081001

REACTIONS (5)
  - ABDOMINAL DISCOMFORT [None]
  - DYSGEUSIA [None]
  - EMOTIONAL DISTRESS [None]
  - FLUSHING [None]
  - NAUSEA [None]
